FAERS Safety Report 7683628 (Version 3)
Quarter: 2012Q4

REPORT INFORMATION
  Report Type: Report from Study
  Country: US (occurrence: US)
  Receive Date: 20101125
  Receipt Date: 20121128
  Transmission Date: 20130627
  Serious: Yes (Hospitalization)
  Sender: FDA-Public Use
  Company Number: PHHO2010US17444

PATIENT
  Age: 66 Year
  Sex: Male
  Weight: 84.8 kg

DRUGS (3)
  1. CERTICAN [Suspect]
     Indication: RENAL TRANSPLANT
     Dosage: 0.75 mg, BID
     Route: 048
     Dates: start: 20101008
  2. PROGRAF [Concomitant]
     Indication: RENAL TRANSPLANT
     Dosage: 5 mg, Q12H
     Route: 048
     Dates: start: 20101008
  3. PREDNISONE [Concomitant]
     Indication: RENAL TRANSPLANT
     Dosage: Taper
     Route: 048
     Dates: start: 20101008

REACTIONS (1)
  - Myocardial infarction [Recovered/Resolved]
